FAERS Safety Report 4715214-0 (Version None)
Quarter: 2005Q3

REPORT INFORMATION
  Report Type: 
  Country: None (occurrence: None)
  Receive Date: 20050715
  Receipt Date: 20050518
  Transmission Date: 20060218
  Serious: Yes (Other)
  Sender: FDA-Public Use
  Company Number: US-ROCHE-405340

PATIENT
  Age: 17 Year
  Sex: Male

DRUGS (5)
  1. ISOTRETINOIN [Suspect]
     Indication: ACNE
     Route: 048
     Dates: start: 20050221, end: 20050302
  2. ISOTRETINOIN [Suspect]
     Route: 048
     Dates: start: 20050315, end: 20050419
  3. ISOTRETINOIN [Suspect]
     Route: 048
     Dates: start: 20050419, end: 20050515
  4. ISOTRETINOIN [Suspect]
     Route: 048
     Dates: start: 20050620
  5. NAPROSYN [Suspect]
     Indication: HEADACHE
     Route: 048

REACTIONS (1)
  - ANGIONEUROTIC OEDEMA [None]
